FAERS Safety Report 6992237-2 (Version None)
Quarter: 2010Q3

REPORT INFORMATION
  Report Type: 
  Country: None (occurrence: None)
  Receive Date: 20100917
  Receipt Date: 20100909
  Transmission Date: 20110219
  Serious: Yes (Hospitalization)
  Sender: FDA-Public Use
  Company Number: US-BRISTOL-MYERS SQUIBB COMPANY-15274814

PATIENT
  Age: 48 Year
  Sex: Female
  Weight: 56 kg

DRUGS (1)
  1. WARFARIN SODIUM [Suspect]
     Route: 048

REACTIONS (3)
  - RENAL FAILURE ACUTE [None]
  - RESPIRATORY FAILURE [None]
  - SKIN NECROSIS [None]
